FAERS Safety Report 5358396-2 (Version None)
Quarter: 2007Q2

REPORT INFORMATION
  Report Type: 
  Country: None (occurrence: None)
  Receive Date: 20070615
  Receipt Date: 20070607
  Transmission Date: 20071010
  Serious: Yes (Hospitalization)
  Sender: FDA-Public Use
  Company Number: PHBS2007GT09455

PATIENT
  Age: 89 Year
  Sex: Male

DRUGS (2)
  1. DIOVAN [Suspect]
     Indication: HYPERTENSION
     Dosage: 1/3 320MG 7DAY
     Route: 048
  2. ACETYLSALICYLIC ACID SRT [Concomitant]
     Dosage: 100 MG/DAY
     Route: 048

REACTIONS (9)
  - BIFASCICULAR BLOCK [None]
  - COLITIS [None]
  - COLONOSCOPY [None]
  - ENDOSCOPY UPPER GASTROINTESTINAL TRACT [None]
  - GASTRITIS EROSIVE [None]
  - HAEMATOCHEZIA [None]
  - HAEMORRHOIDS [None]
  - TELANGIECTASIA [None]
  - VENTRICULAR EXTRASYSTOLES [None]
